FAERS Safety Report 6554409-0 (Version None)
Quarter: 2010Q1

REPORT INFORMATION
  Report Type: 
  Country: None (occurrence: None)
  Receive Date: 20100127
  Receipt Date: 20100106
  Transmission Date: 20100710
  Serious: Yes (Life-Threatening)
  Sender: FDA-Public Use
  Company Number: JP-ROCHE-607095

PATIENT
  Sex: Female

DRUGS (10)
  1. TOCILIZUMAB [Suspect]
     Indication: RHEUMATOID ARTHRITIS
     Route: 041
     Dates: start: 20080925, end: 20080925
  2. TOCILIZUMAB [Suspect]
     Route: 041
     Dates: start: 20081023, end: 20081023
  3. TOCILIZUMAB [Suspect]
     Route: 041
     Dates: start: 20081120, end: 20081120
  4. TOCILIZUMAB [Suspect]
     Route: 041
     Dates: start: 20081218, end: 20081218
  5. RHEUMATREX [Concomitant]
     Route: 048
     Dates: start: 20040901, end: 20081225
  6. PREDONINE [Concomitant]
     Route: 048
     Dates: start: 19940401
  7. ALFAROL [Concomitant]
     Route: 048
     Dates: end: 20081225
  8. VOLTAREN [Concomitant]
     Dosage: FORM: SUSTAINED RELEASE CAPSULE.
     Route: 048
     Dates: end: 20081225
  9. FOLIAMIN [Concomitant]
     Dosage: FORM: ORAL FORMULATION (NOT OTHERWISE SPECIFIED)
     Route: 048
     Dates: end: 20081225
  10. TAGAMET [Concomitant]
     Dosage: FORM: ORAL FORMULATION (NOT OTHERWISE SPECIFIED)
     Route: 048
     Dates: end: 20081225

REACTIONS (4)
  - ACUTE RESPIRATORY DISTRESS SYNDROME [None]
  - PNEUMOCYSTIS JIROVECI PNEUMONIA [None]
  - PNEUMONIA BACTERIAL [None]
  - SEPTIC SHOCK [None]
